FAERS Safety Report 9372469 (Version 1)
Quarter: 2013Q2

REPORT INFORMATION
  Report Type: Spontaneous
  Country: US (occurrence: None)
  Receive Date: 20130612
  Receipt Date: 20130612
  Transmission Date: 20140414
  Serious: No
  Sender: FDA-Public Use
  Company Number: 003-115

PATIENT
  Age: 58 Year
  Sex: Male

DRUGS (1)
  1. CROFAB [Suspect]
     Dates: start: 20060902, end: 20060902

REACTIONS (1)
  - Exsanguination [None]
